FAERS Safety Report 15714717 (Version 4)
Quarter: 2019Q1

REPORT INFORMATION
  Report Type: Spontaneous
  Country: CA (occurrence: CA)
  Receive Date: 20181212
  Receipt Date: 20190208
  Transmission Date: 20190417
  Serious: Yes (Other)
  Sender: FDA-Public Use
  Company Number: CA-CELLTRION INC.-2017CA003598

PATIENT

DRUGS (6)
  1. NOVO-LEFLUNOMIDE [Concomitant]
     Dosage: 20 MG, DAILY
     Dates: start: 20160121
  2. INFLECTRA [Suspect]
     Active Substance: INFLIXIMAB-DYYB
     Dosage: 330 MG, (EVERY 8 WEEKS)
     Route: 042
     Dates: start: 20181129
  3. INFLECTRA [Suspect]
     Active Substance: INFLIXIMAB-DYYB
     Dosage: 330 MG, (EVERY 8 WEEKS)
     Route: 042
     Dates: start: 20190125
  4. INFLECTRA [Suspect]
     Active Substance: INFLIXIMAB-DYYB
     Indication: PSORIATIC ARTHROPATHY
     Dosage: 330 MG, CYCLIC (EVERY 2, 6 WEEKS, THEN EVERY 8 WEEKS FOR 12 MONTHS)
     Route: 042
     Dates: start: 20170204
  5. INFLECTRA [Suspect]
     Active Substance: INFLIXIMAB-DYYB
     Dosage: 330 MG, CYCLIC (EVERY 8 WEEKS)
     Route: 042
     Dates: start: 20180927
  6. ACETAMINOPHEN. [Concomitant]
     Active Substance: ACETAMINOPHEN
     Dosage: UNK

REACTIONS (7)
  - Cystitis [Recovered/Resolved]
  - Eye infection [Unknown]
  - Blood pressure fluctuation [Unknown]
  - Allergy to metals [Unknown]
  - Product use issue [Unknown]
  - Dacryocanaliculitis [Recovered/Resolved]
  - Ear infection [Unknown]

NARRATIVE: CASE EVENT DATE: 20170220
